FAERS Safety Report 14732332 (Version 3)
Quarter: 2018Q2

REPORT INFORMATION
  Report Type: Spontaneous
  Country: US (occurrence: US)
  Receive Date: 20180409
  Receipt Date: 20180522
  Transmission Date: 20180711
  Serious: Yes (Hospitalization, Other)
  Sender: FDA-Public Use
  Company Number: PHEH2018US012704

PATIENT
  Sex: Female
  Weight: 53.61 kg

DRUGS (10)
  1. AMBIEN [Concomitant]
     Active Substance: ZOLPIDEM TARTRATE
     Indication: INSOMNIA
     Dosage: 1 DF, QHS ((1 TABLET AT BEDTIME)
     Route: 048
  2. PNEUMOCOCCAL VACCINE POLYVALENT NOS [Concomitant]
     Active Substance: PNEUMOCOCCAL VACCINE POLYVALENT
     Indication: PRODUCT USED FOR UNKNOWN INDICATION
     Dosage: UNK
     Route: 065
  3. DAILY VITE [Concomitant]
     Active Substance: VITAMINS
     Indication: PRODUCT USED FOR UNKNOWN INDICATION
     Dosage: 1 DF, QW
     Route: 048
  4. CLONAZEPAM. [Concomitant]
     Active Substance: CLONAZEPAM
     Indication: TORTICOLLIS
     Dosage: 1 DF, BID (0.5 DF TO 1 DF BID)
     Route: 048
  5. GILENYA [Suspect]
     Active Substance: FINGOLIMOD HYDROCHLORIDE
     Indication: MULTIPLE SCLEROSIS
     Dosage: 1 DF, UNK
     Route: 048
     Dates: start: 201410, end: 201704
  6. COLCHICINE. [Concomitant]
     Active Substance: COLCHICINE
     Indication: PRODUCT USED FOR UNKNOWN INDICATION
     Dosage: 1 DF, QD
     Route: 048
  7. ALENDRONATE SODIUM. [Concomitant]
     Active Substance: ALENDRONATE SODIUM
     Indication: PRODUCT USED FOR UNKNOWN INDICATION
     Dosage: 1 DF, QW
     Route: 048
  8. IBUPROFEN. [Concomitant]
     Active Substance: IBUPROFEN
     Indication: PRODUCT USED FOR UNKNOWN INDICATION
     Dosage: 1 DF, QD
     Route: 048
  9. LISINOPRIL. [Concomitant]
     Active Substance: LISINOPRIL
     Indication: PRODUCT USED FOR UNKNOWN INDICATION
     Dosage: 1 DF, QD
     Route: 048
  10. ZOLOFT [Concomitant]
     Active Substance: SERTRALINE HYDROCHLORIDE
     Indication: PRODUCT USED FOR UNKNOWN INDICATION
     Dosage: 1 DF, QD
     Route: 048

REACTIONS (30)
  - Malaise [Unknown]
  - Decreased appetite [Unknown]
  - Dizziness [Unknown]
  - Chest discomfort [Unknown]
  - Pericardial effusion [Unknown]
  - Cachexia [Unknown]
  - Dyspnoea [Unknown]
  - Trigeminal neuralgia [Unknown]
  - Ataxia [Unknown]
  - Hypersensitivity [Unknown]
  - Glaucoma [Unknown]
  - Facial pain [Unknown]
  - Pain in jaw [Not Recovered/Not Resolved]
  - Avulsion fracture [Unknown]
  - Pericarditis [Unknown]
  - Cardiac tamponade [Unknown]
  - Hyperthyroidism [Unknown]
  - Multiple sclerosis relapse [Unknown]
  - Diplopia [Recovered/Resolved]
  - Foot fracture [Unknown]
  - Weight decreased [Unknown]
  - Arthralgia [Unknown]
  - Seasonal allergy [Unknown]
  - Anaemia [Unknown]
  - Skin sensitisation [Unknown]
  - Lower respiratory tract infection [Not Recovered/Not Resolved]
  - Cough [Unknown]
  - Gait disturbance [Unknown]
  - Fall [Unknown]
  - Pruritus [Unknown]
